FAERS Safety Report 23333571 (Version 1)
Quarter: 2023Q4

REPORT INFORMATION
  Report Type: Spontaneous
  Country: US (occurrence: US)
  Receive Date: 20231222
  Receipt Date: 20231222
  Transmission Date: 20240110
  Serious: No
  Sender: FDA-Public Use
  Company Number: US-CTI BIOPHARMA-2023US04262

PATIENT

DRUGS (5)
  1. VONJO [Suspect]
     Active Substance: PACRITINIB
     Indication: Myelofibrosis
     Dosage: 200 MG, BID
     Route: 048
     Dates: start: 20230301
  2. BERBERINE [Concomitant]
     Active Substance: BERBERINE
  3. MAGNESIUM [Concomitant]
     Active Substance: MAGNESIUM
  4. RHODIOLA [RHODIOLA ROSEA] [Concomitant]
  5. ZINC [Concomitant]
     Active Substance: PYRITHIONE ZINC\ZINC\ZINC CHLORIDE

REACTIONS (2)
  - Tumour marker decreased [Unknown]
  - Full blood count increased [Unknown]
